FAERS Safety Report 4347948-4 (Version None)
Quarter: 2004Q2

REPORT INFORMATION
  Report Type: 
  Country: None (occurrence: None)
  Receive Date: 20040422
  Receipt Date: 20040402
  Transmission Date: 20050107
  Serious: Yes (Death)
  Sender: FDA-Public Use
  Company Number: US_0404101977

PATIENT
  Age: 58 Year
  Sex: Male
  Weight: 64 kg

DRUGS (1)
  1. TADALAFIL [Suspect]
     Indication: ERECTILE DYSFUNCTION
     Dosage: 20 MG AS NEEDED
     Dates: start: 20031010

REACTIONS (3)
  - FALL [None]
  - HEAD INJURY [None]
  - ROAD TRAFFIC ACCIDENT [None]
